FAERS Safety Report 8935198 (Version 1)
Quarter: 2012Q4

REPORT INFORMATION
  Report Type: 
  Country: KR (occurrence: KR)
  Receive Date: 20121129
  Receipt Date: 20121129
  Transmission Date: 20130627
  Serious: Yes (Hospitalization, Other)
  Sender: FDA-Public Use
  Company Number: PHHY2012KR108330

PATIENT
  Age: 18 Year
  Sex: Male

DRUGS (5)
  1. METHOTREXATE [Suspect]
     Indication: LYMPHOCYTIC LEUKAEMIA
     Route: 037
  2. PREDNISOLONE SANDOZ [Suspect]
     Indication: LYMPHOCYTIC LEUKAEMIA
  3. VINCRISTINE [Suspect]
     Indication: LYMPHOCYTIC LEUKAEMIA
  4. DAUNORUBICIN [Suspect]
     Indication: LYMPHOCYTIC LEUKAEMIA
  5. ASPARAGINASE [Suspect]
     Indication: LYMPHOCYTIC LEUKAEMIA

REACTIONS (7)
  - Pneumatosis intestinalis [Recovered/Resolved]
  - Abdominal distension [Recovered/Resolved]
  - Decreased appetite [Recovered/Resolved]
  - Leukaemia recurrent [Unknown]
  - Pyrexia [Unknown]
  - Blast cells present [Unknown]
  - Haemoglobin decreased [Unknown]
